FAERS Safety Report 25828659 (Version 1)
Quarter: 2025Q3

REPORT INFORMATION
  Report Type: Report from Study
  Country: GB (occurrence: None)
  Receive Date: 20250922
  Receipt Date: 20250922
  Transmission Date: 20251021
  Serious: Yes (Hospitalization)
  Sender: Alvotech
  Company Number: GB-ALVOTECHPMS-2025-ALVOTECHPMS-005203

PATIENT
  Age: 86 Year
  Sex: Female

DRUGS (3)
  1. USTEKINUMAB [Suspect]
     Active Substance: USTEKINUMAB
     Indication: Psoriasis
     Dosage: SOLUTION FOR INJECTION PRE-FILLED SYRINGES
     Route: 058
  2. FUROSEMIDE [Concomitant]
     Active Substance: FUROSEMIDE
  3. PROPRANOLOL [Concomitant]
     Active Substance: PROPRANOLOL HYDROCHLORIDE

REACTIONS (3)
  - Diarrhoea [Unknown]
  - Renal impairment [Recovered/Resolved]
  - Parotid gland enlargement [Unknown]

NARRATIVE: CASE EVENT DATE: 20250101
